FAERS Safety Report 15666512 (Version 2)
Quarter: 2018Q4

REPORT INFORMATION
  Report Type: Spontaneous
  Country: JP (occurrence: JP)
  Receive Date: 20181128
  Receipt Date: 20181204
  Transmission Date: 20190205
  Serious: Yes (Death, Life-Threatening, Hospitalization, Other)
  Sender: FDA-Public Use
  Company Number: JP-ALLERGAN-1854897US

PATIENT
  Age: 91 Year
  Sex: Female

DRUGS (13)
  1. REBAMIPIDE [Concomitant]
     Active Substance: REBAMIPIDE
     Dosage: UNK
     Dates: end: 20160927
  2. RISEDRONATE SODIUM - BP [Suspect]
     Active Substance: RISEDRONATE SODIUM
     Indication: OSTEOPOROSIS
     Dosage: 17.5 MG, QD
     Route: 065
     Dates: start: 20111026, end: 20111115
  3. CARNACULIN [Concomitant]
     Active Substance: KALLIDINOGENASE
     Dosage: UNK
     Dates: start: 20160118, end: 20161013
  4. BONVIVA [Suspect]
     Active Substance: IBANDRONATE SODIUM
     Indication: OSTEOPOROSIS
     Dosage: 1 MG, Q MONTH
     Route: 042
     Dates: start: 20160120, end: 20160914
  5. MAGMITT [Concomitant]
     Active Substance: MAGNESIUM OXIDE
     Dosage: UNK
     Dates: start: 20160118, end: 20161014
  6. LOXOPROFEN SODIUM [Concomitant]
     Active Substance: LOXOPROFEN SODIUM
     Dosage: UNK
     Dates: end: 20160917
  7. BLADDERON [Concomitant]
     Active Substance: FLAVOXATE
     Dosage: UNK
     Dates: start: 20160118, end: 20161004
  8. DONEPEZIL HYDROCHLORIDE. [Concomitant]
     Active Substance: DONEPEZIL HYDROCHLORIDE
     Dosage: UNK
     Dates: start: 20160118, end: 20161004
  9. FOSAMAC [Suspect]
     Active Substance: ALENDRONATE SODIUM
     Indication: OSTEOPOROSIS
     Dosage: 35 MG, Q WEEK
     Route: 048
     Dates: start: 20111115, end: 20120411
  10. MERISLON [Concomitant]
     Active Substance: BETAHISTINE MESILATE
     Dosage: UNK
     Dates: start: 20160118, end: 20161013
  11. JUVELA N [Concomitant]
     Active Substance: TOCOPHERYL NICOTINATE, D-.ALPHA.
     Dosage: UNK
     Dates: start: 20160118
  12. TERIPARATIDE [Concomitant]
     Active Substance: TERIPARATIDE
     Dosage: UNK
     Route: 065
  13. ALENDRONATE SODIUM. [Suspect]
     Active Substance: ALENDRONATE SODIUM
     Indication: OSTEOPOROSIS
     Dosage: 35 MG, Q WEEK
     Route: 048
     Dates: start: 20120411, end: 20160120

REACTIONS (15)
  - Gingival disorder [Unknown]
  - Dehydration [Unknown]
  - Oral mucosal discolouration [Unknown]
  - Mouth haemorrhage [Unknown]
  - Pubis fracture [Unknown]
  - Osteonecrosis of jaw [Unknown]
  - Device failure [Unknown]
  - Asthenia [Unknown]
  - Palatal ulcer [Unknown]
  - Cardio-respiratory arrest [Fatal]
  - Pneumonia aspiration [Unknown]
  - Dry skin [Unknown]
  - Hypophagia [Unknown]
  - Urine abnormality [Unknown]
  - Nasopharyngitis [Unknown]

NARRATIVE: CASE EVENT DATE: 201608
